FAERS Safety Report 11361801 (Version 1)
Quarter: 2015Q3

REPORT INFORMATION
  Report Type: Spontaneous
  Country: US (occurrence: US)
  Receive Date: 20150810
  Receipt Date: 20150810
  Transmission Date: 20151125
  Serious: No
  Sender: FDA-Public Use
  Company Number: US-PFIZER INC-2015253810

PATIENT
  Sex: Male

DRUGS (1)
  1. AVINZA [Suspect]
     Active Substance: MORPHINE SULFATE
     Dosage: ER MULTIPHASE 24 HR 120MG (2 CAPSULES BY ORAL ROUTE DAILY)
     Route: 048
     Dates: start: 20150715

REACTIONS (2)
  - Urticaria [Unknown]
  - Drug hypersensitivity [Unknown]
